FAERS Safety Report 7324026-3 (Version None)
Quarter: 2011Q1

REPORT INFORMATION
  Report Type: 
  Country: None (occurrence: None)
  Receive Date: 20110217
  Receipt Date: 20110201
  Transmission Date: 20110831
  Serious: Yes (Other)
  Sender: FDA-Public Use
  Company Number: FK201100112

PATIENT
  Age: 12 Year
  Sex: Male

DRUGS (5)
  1. ETOPOSIDE [Suspect]
     Indication: BONE SARCOMA
  2. DOXORUBICIN HCL [Suspect]
     Indication: BONE SARCOMA
  3. CISPLATIN [Suspect]
     Indication: BONE SARCOMA
  4. IFOSFAMIDE [Suspect]
     Indication: BONE SARCOMA
  5. METHOTREXATE [Suspect]
     Indication: BONE SARCOMA

REACTIONS (4)
  - BONE MARROW FAILURE [None]
  - HEPATOTOXICITY [None]
  - RENAL FAILURE ACUTE [None]
  - COAGULOPATHY [None]
